FAERS Safety Report 8248955-1 (Version None)
Quarter: 2012Q2

REPORT INFORMATION
  Report Type: 
  Country: None (occurrence: None)
  Receive Date: 20120402
  Receipt Date: 20120326
  Transmission Date: 20120825
  Serious: Yes (Hospitalization)
  Sender: FDA-Public Use
  Company Number: US-AMGEN-USASP2012019273

PATIENT
  Age: 55 Year
  Sex: Female

DRUGS (3)
  1. ENBREL [Suspect]
     Indication: RHEUMATOID ARTHRITIS
     Dosage: 50 MG, QWK
     Dates: start: 20111107, end: 20120316
  2. ENBREL [Suspect]
     Indication: SYSTEMIC LUPUS ERYTHEMATOSUS
  3. METHOTREXATE [Concomitant]
     Dosage: UNK
     Dates: start: 20110901

REACTIONS (10)
  - PANCREATITIS [None]
  - VOMITING [None]
  - BACK PAIN [None]
  - FOOT FRACTURE [None]
  - MUSCULOSKELETAL PAIN [None]
  - FATIGUE [None]
  - PAIN IN EXTREMITY [None]
  - MOUTH ULCERATION [None]
  - CHOLECYSTECTOMY [None]
  - DEHYDRATION [None]
